FAERS Safety Report 20493194 (Version 1)
Quarter: 2022Q1

REPORT INFORMATION
  Report Type: Spontaneous
  Country: AT (occurrence: AT)
  Receive Date: 20220220
  Receipt Date: 20220220
  Transmission Date: 20220423
  Serious: Yes (Other)
  Sender: FDA-Public Use
  Company Number: None

PATIENT
  Age: 61 Year
  Sex: Male

DRUGS (1)
  1. ROSUVASTATIN [Suspect]
     Active Substance: ROSUVASTATIN
     Indication: Lipids increased
     Dosage: ACCORDING TO TECHNICAL INFORMATION AND RECOMMENDATIONS FOR USE, ROSUVASTATIN RATIOPHARM 10 MG
     Route: 065
     Dates: start: 20211208, end: 20211208

REACTIONS (4)
  - Loss of consciousness [Unknown]
  - Urticaria [Unknown]
  - Dyspnoea [Unknown]
  - Type I hypersensitivity [Unknown]

NARRATIVE: CASE EVENT DATE: 20211208
